FAERS Safety Report 7137934-3 (Version None)
Quarter: 2010Q4

REPORT INFORMATION
  Report Type: 
  Country: None (occurrence: None)
  Receive Date: 20101103
  Receipt Date: 20100505
  Transmission Date: 20110411
  Serious: Yes (Other)
  Sender: FDA-Public Use
  Company Number: 2010S1001352

PATIENT
  Age: 62 Year
  Sex: Male
  Weight: 71 kg

DRUGS (5)
  1. CUBICIN [Suspect]
     Indication: INFECTION
     Dosage: 4.9 MG/KG; QD; IV
     Route: 042
     Dates: end: 20070101
  2. VANCOMYCIN [Concomitant]
  3. CIPROFLOXACIN [Concomitant]
  4. IMIPENEM [Concomitant]
  5. MEROPENEM [Concomitant]

REACTIONS (1)
  - EOSINOPHILIC PNEUMONIA [None]
